FAERS Safety Report 13532290 (Version 1)
Quarter: 2017Q2

REPORT INFORMATION
  Report Type: Report from Study
  Country: US (occurrence: US)
  Receive Date: 20170510
  Receipt Date: 20170510
  Transmission Date: 20170830
  Serious: Yes (Other)
  Sender: FDA-Public Use
  Company Number: US-BRISTOL-MYERS SQUIBB COMPANY-BMS-2017-017684

PATIENT
  Sex: Male

DRUGS (2)
  1. NIVOLUMAB [Suspect]
     Active Substance: NIVOLUMAB
     Indication: MALIGNANT MELANOMA
     Dosage: UNK
     Route: 042
  2. IPILIMUMAB [Suspect]
     Active Substance: IPILIMUMAB
     Indication: MALIGNANT MELANOMA
     Dosage: UNK
     Route: 042

REACTIONS (18)
  - Rash [Unknown]
  - Abnormal faeces [Unknown]
  - Oropharyngeal pain [Recovered/Resolved]
  - Dizziness [Unknown]
  - Insomnia [Unknown]
  - Diplopia [Recovering/Resolving]
  - Diarrhoea [Unknown]
  - Appetite disorder [Unknown]
  - Weight decreased [Unknown]
  - Gamma radiation therapy [Unknown]
  - Dyschezia [Unknown]
  - Dysgeusia [Unknown]
  - Feeling abnormal [Unknown]
  - Headache [Unknown]
  - Productive cough [Unknown]
  - Gait disturbance [Unknown]
  - Pruritus [Unknown]
  - Fatigue [Unknown]
